FAERS Safety Report 5460619-6 (Version None)
Quarter: 2007Q3

REPORT INFORMATION
  Report Type: 
  Country: None (occurrence: None)
  Receive Date: 20070919
  Receipt Date: 20070907
  Transmission Date: 20080115
  Serious: Yes (Other)
  Sender: FDA-Public Use
  Company Number: GB-PFIZER INC-2007075576

PATIENT
  Age: 41 Year
  Sex: Male
  Weight: 90 kg

DRUGS (5)
  1. VARENICLINE TABLETS [Suspect]
     Indication: SMOKING CESSATION THERAPY
     Route: 048
  2. BECLOMETHASONE DIPROPIONATE [Concomitant]
     Route: 055
  3. LANSOPRAZOLE [Concomitant]
  4. ALBUTEROL [Concomitant]
     Route: 055
  5. SALMETEROL [Concomitant]
     Route: 055

REACTIONS (3)
  - AGEUSIA [None]
  - DYSGEUSIA [None]
  - NAUSEA [None]
